FAERS Safety Report 22202436 (Version 1)
Quarter: 2023Q2

REPORT INFORMATION
  Report Type: Spontaneous
  Country: None (occurrence: US)
  Receive Date: 20230412
  Receipt Date: 20230412
  Transmission Date: 20230722
  Serious: No
  Sender: FDA-Public Use
  Company Number: US-Mission Pharmacal Company-2140199

PATIENT
  Age: 73 Year
  Sex: Female

DRUGS (7)
  1. POTASSIUM CITRATE [Suspect]
     Active Substance: POTASSIUM CITRATE
     Indication: Cystinuria
     Route: 048
  2. THIOLA EC [Concomitant]
     Active Substance: TIOPRONIN
     Route: 048
     Dates: start: 20190828, end: 20230411
  3. BUDESONIDE [Concomitant]
     Active Substance: BUDESONIDE
  4. METOPROLOL SUCCINATE [Concomitant]
     Active Substance: METOPROLOL SUCCINATE
  5. FINASTERIDE [Concomitant]
     Active Substance: FINASTERIDE
  6. PRAVASTATIN [Concomitant]
     Active Substance: PRAVASTATIN
  7. FAMOTIDINE [Concomitant]
     Active Substance: FAMOTIDINE

REACTIONS (1)
  - Proteinuria [Unknown]
